FAERS Safety Report 12932623 (Version 2)
Quarter: 2016Q4

REPORT INFORMATION
  Report Type: Report from Study
  Country: US (occurrence: US)
  Receive Date: 20161111
  Receipt Date: 20161117
  Transmission Date: 20170207
  Serious: Yes (Hospitalization, Other)
  Sender: FDA-Public Use
  Company Number: US-AMGEN-USASL2016155909

PATIENT
  Age: 74 Year
  Sex: Female
  Weight: 86.62 kg

DRUGS (4)
  1. NPLATE [Suspect]
     Active Substance: ROMIPLOSTIM
     Dosage: EVERY 2 TO 3 WEEKS
     Route: 065
  2. COUMADIN [Concomitant]
     Active Substance: WARFARIN SODIUM
     Dosage: UNK
  3. NPLATE [Suspect]
     Active Substance: ROMIPLOSTIM
     Dosage: UNK, QWK
     Route: 065
  4. NPLATE [Suspect]
     Active Substance: ROMIPLOSTIM
     Indication: IMMUNE THROMBOCYTOPENIC PURPURA
     Dosage: 250 MCG, Q2WK
     Route: 058
     Dates: start: 20100304

REACTIONS (9)
  - Platelet count abnormal [Unknown]
  - Tinnitus [Unknown]
  - IIIrd nerve paralysis [Recovered/Resolved]
  - Headache [Not Recovered/Not Resolved]
  - Diplopia [Recovered/Resolved]
  - Palpitations [Unknown]
  - Retinal vein thrombosis [Recovered/Resolved]
  - Sinusitis [Unknown]
  - Migraine [Unknown]

NARRATIVE: CASE EVENT DATE: 201607
